FAERS Safety Report 24842055 (Version 3)
Quarter: 2025Q1

REPORT INFORMATION
  Report Type: Report from Study
  Country: CA (occurrence: CA)
  Receive Date: 20250114
  Receipt Date: 20250303
  Transmission Date: 20250408
  Serious: Yes (Death, Hospitalization)
  Sender: ABBVIE
  Company Number: CA-ABBVIE-6078333

PATIENT
  Age: 73 Year
  Sex: Male

DRUGS (47)
  1. VENETOCLAX [Suspect]
     Active Substance: VENETOCLAX
     Indication: Acute myeloid leukaemia
     Route: 048
     Dates: start: 20230802, end: 20230827
  2. VENETOCLAX [Suspect]
     Active Substance: VENETOCLAX
     Indication: Acute myeloid leukaemia
     Route: 048
     Dates: start: 20231218, end: 20240115
  3. VENETOCLAX [Suspect]
     Active Substance: VENETOCLAX
     Indication: Acute myeloid leukaemia
     Route: 048
     Dates: start: 20240408, end: 20240505
  4. VENETOCLAX [Suspect]
     Active Substance: VENETOCLAX
     Indication: Acute myeloid leukaemia
     Route: 048
     Dates: start: 20230731, end: 20230731
  5. VENETOCLAX [Suspect]
     Active Substance: VENETOCLAX
     Indication: Acute myeloid leukaemia
     Route: 048
     Dates: start: 20230801, end: 20230801
  6. VENETOCLAX [Suspect]
     Active Substance: VENETOCLAX
     Indication: Acute myeloid leukaemia
     Route: 048
     Dates: start: 20231016, end: 20231123
  7. VENETOCLAX [Suspect]
     Active Substance: VENETOCLAX
     Indication: Acute myeloid leukaemia
     Route: 048
     Dates: start: 20231123, end: 20231218
  8. VENETOCLAX [Suspect]
     Active Substance: VENETOCLAX
     Indication: Acute myeloid leukaemia
     Route: 048
     Dates: start: 20230918, end: 20231016
  9. VENETOCLAX [Suspect]
     Active Substance: VENETOCLAX
     Indication: Acute myeloid leukaemia
     Route: 048
     Dates: start: 20240115, end: 20240211
  10. COVID-19 vaccine mRNA [Concomitant]
     Indication: COVID-19 immunisation
     Route: 030
  11. AZACITIDINE [Suspect]
     Active Substance: AZACITIDINE
     Indication: Acute myeloid leukaemia
     Route: 065
     Dates: start: 20230728, end: 20230803
  12. AZACITIDINE [Suspect]
     Active Substance: AZACITIDINE
     Indication: Acute myeloid leukaemia
     Route: 065
     Dates: start: 20231218, end: 20231221
  13. AZACITIDINE [Suspect]
     Active Substance: AZACITIDINE
     Indication: Acute myeloid leukaemia
     Route: 065
     Dates: start: 20240115, end: 20240119
  14. AZACITIDINE [Suspect]
     Active Substance: AZACITIDINE
     Indication: Acute myeloid leukaemia
     Route: 065
     Dates: start: 20240122, end: 20240123
  15. AZACITIDINE [Suspect]
     Active Substance: AZACITIDINE
     Indication: Acute myeloid leukaemia
     Route: 065
     Dates: start: 20240408, end: 20240412
  16. AZACITIDINE [Suspect]
     Active Substance: AZACITIDINE
     Indication: Acute myeloid leukaemia
     Route: 065
     Dates: start: 20240415, end: 20240416
  17. AZACITIDINE [Suspect]
     Active Substance: AZACITIDINE
     Indication: Acute myeloid leukaemia
     Route: 065
     Dates: start: 20240805, end: 20240809
  18. AZACITIDINE [Suspect]
     Active Substance: AZACITIDINE
     Indication: Acute myeloid leukaemia
     Route: 065
     Dates: start: 20230918, end: 20230922
  19. AZACITIDINE [Suspect]
     Active Substance: AZACITIDINE
     Indication: Acute myeloid leukaemia
     Route: 065
     Dates: start: 20230925, end: 20230926
  20. AZACITIDINE [Suspect]
     Active Substance: AZACITIDINE
     Indication: Acute myeloid leukaemia
     Route: 065
     Dates: start: 20231016, end: 20231020
  21. AZACITIDINE [Suspect]
     Active Substance: AZACITIDINE
     Indication: Acute myeloid leukaemia
     Route: 065
     Dates: start: 20231023, end: 20231024
  22. AZACITIDINE [Suspect]
     Active Substance: AZACITIDINE
     Indication: Acute myeloid leukaemia
     Route: 065
     Dates: start: 20231123, end: 20231124
  23. AZACITIDINE [Suspect]
     Active Substance: AZACITIDINE
     Indication: Acute myeloid leukaemia
     Route: 065
     Dates: start: 20231127, end: 20231201
  24. GLICLAZIDE [Concomitant]
     Active Substance: GLICLAZIDE
     Indication: Diabetes mellitus
     Dates: start: 20230711
  25. NIFEDIPINE [Concomitant]
     Active Substance: NIFEDIPINE
     Indication: Hypertension
     Dates: start: 20210727
  26. PIPERACILLIN AND TAZOBACTAM [Concomitant]
     Active Substance: PIPERACILLIN SODIUM\TAZOBACTAM SODIUM
     Indication: Abscess neck
     Route: 042
     Dates: start: 20230714, end: 20230814
  27. ALLOPURINOL [Concomitant]
     Active Substance: ALLOPURINOL
     Indication: Renal disorder prophylaxis
     Route: 048
     Dates: start: 20230727, end: 20230823
  28. DILAUDID [Concomitant]
     Active Substance: HYDROMORPHONE HYDROCHLORIDE
     Indication: Pain
     Route: 048
     Dates: start: 20220603
  29. UNSPECIFIED INGREDIENT [Concomitant]
     Active Substance: UNSPECIFIED INGREDIENT
     Indication: Blood phosphorus decreased
     Route: 042
     Dates: start: 20230723, end: 20230814
  30. SENNA [Concomitant]
     Active Substance: SENNOSIDES
     Indication: Laxative supportive care
     Route: 048
     Dates: start: 20230814
  31. AMOXICILLIN\CLAVULANIC ACID [Concomitant]
     Active Substance: AMOXICILLIN\CLAVULANIC ACID
     Indication: Abscess neck
     Route: 050
     Dates: start: 20230804, end: 20230912
  32. ZOFRAN [Concomitant]
     Active Substance: ONDANSETRON HYDROCHLORIDE
     Indication: Nausea
     Route: 048
     Dates: start: 20230728
  33. METOCLOPRAMIDE [Concomitant]
     Active Substance: METOCLOPRAMIDE
     Indication: Nausea
     Route: 048
     Dates: start: 20230918, end: 20231124
  34. LOVENOX [Concomitant]
     Active Substance: ENOXAPARIN SODIUM
     Indication: Deep vein thrombosis
     Route: 048
     Dates: start: 20230825, end: 20230926
  35. APIXABAN [Concomitant]
     Active Substance: APIXABAN
     Indication: Deep vein thrombosis
     Route: 048
     Dates: start: 20230926
  36. ACETAMINOPHEN [Concomitant]
     Active Substance: ACETAMINOPHEN
     Indication: Pain
     Route: 048
     Dates: start: 20230821, end: 20230906
  37. GRAVOL [Concomitant]
     Active Substance: DIMENHYDRINATE
     Indication: Nausea
     Route: 048
     Dates: start: 20230821, end: 20230906
  38. POLYETHYLENE GLYCOLS [Concomitant]
     Active Substance: POLYETHYLENE GLYCOLS
     Indication: Constipation
     Route: 048
     Dates: start: 20230821, end: 20230906
  39. LOVENOX [Concomitant]
     Active Substance: ENOXAPARIN SODIUM
     Indication: Deep vein thrombosis
     Route: 048
     Dates: start: 20230821, end: 20230825
  40. METOCLOPRAMIDE [Concomitant]
     Active Substance: METOCLOPRAMIDE
     Indication: Nausea
     Route: 048
     Dates: start: 20231126, end: 20240115
  41. GRAVOL [Concomitant]
     Active Substance: DIMENHYDRINATE
     Indication: Nausea
     Route: 048
     Dates: start: 20230821, end: 20230906
  42. METOCLOPRAMIDE [Concomitant]
     Active Substance: METOCLOPRAMIDE
     Indication: Nausea
     Route: 048
     Dates: start: 20240115, end: 20240311
  43. PEPTO-BISMOL [Concomitant]
     Active Substance: BISMUTH SUBSALICYLATE
     Indication: Diarrhoea
     Route: 048
     Dates: start: 20231211
  44. FILGRASTIM [Concomitant]
     Active Substance: FILGRASTIM
     Indication: Investigation abnormal
     Route: 058
     Dates: start: 20240716
  45. LEVOMEPROMAZINE MALEATE [Concomitant]
     Active Substance: LEVOMEPROMAZINE MALEATE
     Indication: Nausea
     Route: 048
     Dates: start: 20240311, end: 20240708
  46. LOPERAMIDE [Concomitant]
     Active Substance: LOPERAMIDE
     Indication: Diarrhoea
     Route: 048
     Dates: start: 20240408
  47. PROCHLORPERAZINE [Concomitant]
     Active Substance: PROCHLORPERAZINE
     Indication: Nausea
     Route: 048
     Dates: start: 20240315

REACTIONS (1)
  - Febrile neutropenia [Fatal]

NARRATIVE: CASE EVENT DATE: 20240910
